FAERS Safety Report 15571803 (Version 1)
Quarter: 2018Q4

REPORT INFORMATION
  Report Type: Spontaneous
  Country: US (occurrence: US)
  Receive Date: 20181031
  Receipt Date: 20181031
  Transmission Date: 20190205
  Serious: Yes (Hospitalization)
  Sender: FDA-Public Use
  Company Number: US-FRESENIUS MEDICAL CARE RENAL THERAPIES GROUP-FMC-1810-001875

PATIENT
  Age: 67 Year
  Sex: Female
  Weight: 66 kg

DRUGS (9)
  1. LEVOTHYROXINE. [Concomitant]
     Active Substance: LEVOTHYROXINE
  2. BUMETANIDE. [Concomitant]
     Active Substance: BUMETANIDE
     Dosage: 3 TIMES DAILY
  3. LANTUS [Concomitant]
     Active Substance: INSULIN GLARGINE
  4. LOPRESSOR [Concomitant]
     Active Substance: METOPROLOL TARTRATE
  5. METOPROLOL TARTRATE. [Concomitant]
     Active Substance: METOPROLOL TARTRATE
  6. GLUCAGON. [Concomitant]
     Active Substance: GLUCAGON
  7. INSULIN [Concomitant]
     Active Substance: INSULIN NOS
  8. TYLENOL [Concomitant]
     Active Substance: ACETAMINOPHEN
  9. DELFLEX WITH DEXTROSE 1.5% LOW MAGNESIUM LOW CALCIUM [Suspect]
     Active Substance: CALCIUM CHLORIDE\DEXTROSE\MAGNESIUM CHLORIDE\SODIUM CHLORIDE\SODIUM LACTATE
     Indication: END STAGE RENAL DISEASE
     Route: 033

REACTIONS (1)
  - Pleural effusion [Recovering/Resolving]

NARRATIVE: CASE EVENT DATE: 20180908
